FAERS Safety Report 7381915-1 (Version None)
Quarter: 2011Q1

REPORT INFORMATION
  Report Type: 
  Country: None (occurrence: None)
  Receive Date: 20110329
  Receipt Date: 20110318
  Transmission Date: 20110831
  Serious: Yes (Life-Threatening, Hospitalization, Other)
  Sender: FDA-Public Use
  Company Number: CA-ELI_LILLY_AND_COMPANY-CA201102003527

PATIENT
  Age: 62 Year
  Sex: Female
  Weight: 49.887 kg

DRUGS (7)
  1. FORTEO [Suspect]
     Indication: OSTEOPOROSIS
     Dosage: 20 UG, DAILY (1/D)
     Route: 058
     Dates: start: 20101201
  2. NEXIUM [Concomitant]
  3. PREDNISONE [Concomitant]
  4. CALCIUM [Concomitant]
  5. CHEMOTHERAPEUTICS [Concomitant]
     Dosage: UNK, MONTHLY (1/M)
  6. FORTEO [Suspect]
     Dosage: 20 UG, UNK
     Route: 058
     Dates: start: 20110318
  7. GABAPENTIN [Concomitant]

REACTIONS (6)
  - HAEMORRHAGE [None]
  - MOBILITY DECREASED [None]
  - ABDOMINAL PAIN UPPER [None]
  - ANEURYSM [None]
  - FISTULA [None]
  - WEIGHT DECREASED [None]
